FAERS Safety Report 7099457-X (Version None)
Quarter: 2010Q4

REPORT INFORMATION
  Report Type: 
  Country: None (occurrence: None)
  Receive Date: 20101112
  Receipt Date: 20101103
  Transmission Date: 20110411
  Serious: Yes (Death)
  Sender: FDA-Public Use
  Company Number: GXKR2010IL12405

PATIENT
  Age: 58 Year
  Sex: Male

DRUGS (3)
  1. NAPROXEN [Suspect]
     Indication: OSTEOARTHRITIS
     Route: 065
  2. LITHIUM [Concomitant]
     Indication: SCHIZOPHRENIA
  3. OLANZAPINE [Concomitant]
     Indication: SCHIZOPHRENIA

REACTIONS (16)
  - BLOOD BLISTER [None]
  - DUODENAL ULCER [None]
  - GASTROINTESTINAL HAEMORRHAGE [None]
  - HAEMATEMESIS [None]
  - LEUKOCYTOCLASTIC VASCULITIS [None]
  - MECHANICAL VENTILATION [None]
  - OEDEMA PERIPHERAL [None]
  - PALPABLE PURPURA [None]
  - PAPULE [None]
  - PNEUMONIA [None]
  - PYREXIA [None]
  - RASH [None]
  - RESPIRATORY FAILURE [None]
  - SKIN NECROSIS [None]
  - SKIN ULCER [None]
  - VOMITING [None]
